FAERS Safety Report 8543010-5 (Version None)
Quarter: 2012Q3

REPORT INFORMATION
  Report Type: 
  Country: None (occurrence: None)
  Receive Date: 20120727
  Receipt Date: 20120718
  Transmission Date: 20120928
  Serious: Yes (Other)
  Sender: FDA-Public Use
  Company Number: GB-BAYER-2012-052538

PATIENT
  Age: 61 Year
  Sex: Male

DRUGS (6)
  1. RAMIPRIL [Concomitant]
     Dosage: 10 MG, QD
     Route: 048
     Dates: start: 20070101
  2. GEMCITABINE [Concomitant]
  3. CARBOPLATIN [Concomitant]
  4. SORAFENIB (RAF KINASE INHIBITOR) [Suspect]
     Indication: RENAL CELL CARCINOMA
     Dosage: 400 MG, QD
     Dates: start: 20080115, end: 20110118
  5. AMLODIPINE [Concomitant]
     Dosage: UNK
     Dates: start: 20070101
  6. BENDROFLUMETHIAZIDE [Concomitant]
     Dosage: UNK
     Dates: start: 20070101

REACTIONS (1)
  - LUNG NEOPLASM MALIGNANT [None]
